FAERS Safety Report 7688860-2 (Version None)
Quarter: 2011Q3

REPORT INFORMATION
  Report Type: 
  Country: None (occurrence: None)
  Receive Date: 20110817
  Receipt Date: 20110808
  Transmission Date: 20111222
  Serious: Yes (Hospitalization, Other)
  Sender: FDA-Public Use
  Company Number: PHHY2011CA63851

PATIENT
  Sex: Male

DRUGS (12)
  1. CLOZAPINE [Suspect]
     Dosage: 100 MG, 2 TAB QHS
     Route: 048
  2. CLOZAPINE [Suspect]
     Dosage: 25 MG, 2 TAB BID
  3. FLUANXOL [Concomitant]
     Dosage: 3 MG, ONE TAB QHS
  4. ATORVASTATIN [Concomitant]
     Dosage: 40 MG, ONE TAB AT DINNER
  5. SYNTHROID [Concomitant]
     Dosage: 0.05 MG, ONE TAB QAM
  6. ACETAMINOPHEN [Concomitant]
     Dosage: 325 MG, 2 CAPSULE QID
  7. PAROXETINE HCL [Concomitant]
     Dosage: 20 MG, 2 TAB QAM
  8. EUCERIN FACIAL CREME [Concomitant]
     Dosage: 5 %,
  9. CLOZAPINE [Suspect]
     Dosage: 300 MG, QD
     Route: 048
     Dates: start: 20110327
  10. MAGIS [Concomitant]
     Dosage: UNK UKN, UNK
  11. PANTOPRAZOLE [Concomitant]
     Dosage: 40 MG, ONE TAB QAM
  12. NIFEDIPINE [Concomitant]
     Dosage: 5 MG,
     Route: 048

REACTIONS (3)
  - RENAL FAILURE [None]
  - ANTIPSYCHOTIC DRUG LEVEL INCREASED [None]
  - HYPOTENSION [None]
